FAERS Safety Report 5952985-X (Version None)
Quarter: 2008Q4

REPORT INFORMATION
  Report Type: 
  Country: None (occurrence: None)
  Receive Date: 20081114
  Receipt Date: 20081103
  Transmission Date: 20090506
  Serious: Yes (Hospitalization)
  Sender: FDA-Public Use
  Company Number: US-AVENTIS-200817683US

PATIENT
  Age: 55 Year
  Sex: Male

DRUGS (7)
  1. KETEK [Suspect]
     Dosage: DOSE: UNK
  2. LOTREL [Concomitant]
     Dosage: DOSE: 5/20
  3. BENAZEPRIL HYDROCHLORIDE [Concomitant]
  4. LIPITOR [Concomitant]
  5. ASPIRIN [Concomitant]
     Dosage: DOSE: 81 (2 TABS)
  6. AVELOX [Concomitant]
     Dosage: DOSE: UNK
  7. LEVAQUIN [Concomitant]

REACTIONS (15)
  - ALANINE AMINOTRANSFERASE INCREASED [None]
  - ANAEMIA [None]
  - ASPARTATE AMINOTRANSFERASE INCREASED [None]
  - BLOOD ALKALINE PHOSPHATASE INCREASED [None]
  - COMPUTERISED TOMOGRAM ABDOMEN ABNORMAL [None]
  - DYSURIA [None]
  - HEPATIC ENZYME INCREASED [None]
  - HYPONATRAEMIA [None]
  - MYALGIA [None]
  - PYREXIA [None]
  - TEMPOROMANDIBULAR JOINT SYNDROME [None]
  - TESTICULAR SWELLING [None]
  - TREMOR [None]
  - UMBILICAL HERNIA [None]
  - WHITE BLOOD CELL COUNT INCREASED [None]
